FAERS Safety Report 7816212-0 (Version None)
Quarter: 2011Q4

REPORT INFORMATION
  Report Type: 
  Country: None (occurrence: None)
  Receive Date: 20111015
  Receipt Date: 20111004
  Transmission Date: 20120403
  Serious: Yes (Hospitalization)
  Sender: FDA-Public Use
  Company Number: JP-ROCHE-1003239

PATIENT
  Age: 4 Decade
  Sex: Male

DRUGS (7)
  1. ZITHROMAX [Concomitant]
     Dates: start: 20100210, end: 20100331
  2. SULFAMETHOXAZOLE [Concomitant]
     Dosage: 2 TABLETS DAILY
     Route: 048
     Dates: start: 20100210, end: 20100331
  3. TRUVADA [Concomitant]
     Dosage: 1 TABLET DAILY DOSE
     Route: 048
     Dates: start: 20100319, end: 20100331
  4. ISENTRESS [Concomitant]
     Route: 048
     Dates: start: 20100319, end: 20100331
  5. VALCYTE [Suspect]
     Indication: CYTOMEGALOVIRUS INFECTION
     Route: 048
     Dates: start: 20100218, end: 20100311
  6. VALCYTE [Suspect]
     Dates: start: 20100312, end: 20100331
  7. FLUCONAZOLE [Concomitant]
     Route: 048
     Dates: start: 20100217, end: 20100304

REACTIONS (2)
  - PANCYTOPENIA [None]
  - LIVER DISORDER [None]
